FAERS Safety Report 15826352 (Version 4)
Quarter: 2019Q1

REPORT INFORMATION
  Report Type: Spontaneous
  Country: IT (occurrence: IT)
  Receive Date: 20190115
  Receipt Date: 20190211
  Transmission Date: 20190417
  Serious: Yes (Other)
  Sender: FDA-Public Use
  Company Number: PHHY2019IT003235

PATIENT
  Sex: Male

DRUGS (22)
  1. PHENOBARBITAL. [Suspect]
     Active Substance: PHENOBARBITAL
     Dosage: 5 MG/KG, UNK
     Route: 065
  2. POTASSIUM BROMIDE [Concomitant]
     Active Substance: POTASSIUM BROMIDE
     Indication: PARTIAL SEIZURES
     Dosage: 45 MG/KG, QD
     Route: 065
  3. LEVETIRACETAM. [Suspect]
     Active Substance: LEVETIRACETAM
     Dosage: 45 MG/KG, UNK (45 MG/KG,DAILY)
     Route: 065
  4. QUINIDINE [Suspect]
     Active Substance: QUINIDINE
     Dosage: 50 MG/KG, UNK (TITRATED UP TO A TARGET DOSE OF 50 MG/KG/DAY)
     Route: 065
  5. QUINIDINE [Suspect]
     Active Substance: QUINIDINE
     Dosage: 180 MG/KG, QD(DOSE WAS INCREASED TO 45 MG/KG
     Route: 065
  6. QUINIDINE [Suspect]
     Active Substance: QUINIDINE
     Dosage: 8 MG/KG, QD (2 MG/KG, 4X/DAY (QID))
     Route: 065
  7. MIDAZOLAM [Concomitant]
     Active Substance: MIDAZOLAM HYDROCHLORIDE
     Indication: PARTIAL SEIZURES
     Dosage: 0.2 MG/KG, QH
     Route: 065
  8. PYRIDOXINE [Concomitant]
     Active Substance: PYRIDOXINE
     Indication: PARTIAL SEIZURES
     Dosage: 30 MG/KG, QD
     Route: 065
  9. QUINIDINE [Suspect]
     Active Substance: QUINIDINE
     Dosage: 70 MG/KG, UNK (INCREASED FROM 50 TO 70 MG/KG IN 2 WEEKS)
     Route: 065
  10. QUINIDINE [Suspect]
     Active Substance: QUINIDINE
     Dosage: 50 MG/KG, QD
     Route: 065
  11. CARBAMAZEPINE. [Concomitant]
     Active Substance: CARBAMAZEPINE
     Indication: PARTIAL SEIZURES
     Dosage: UNK
     Route: 065
  12. PHENOBARBITAL. [Suspect]
     Active Substance: PHENOBARBITAL
     Dosage: 8 MG/KG, UNK (INCREASED TO 8 MG/KG/DAY)
     Route: 065
  13. QUINIDINE [Suspect]
     Active Substance: QUINIDINE
     Indication: PARTIAL SEIZURES
     Dosage: 35 MG/KG, UNK (AFTER THE SECOND INCREASE TO 50MG/KG, REDUCED TO 35MG/KG)
     Route: 065
  14. QUINIDINE [Suspect]
     Active Substance: QUINIDINE
     Dosage: 5 MG/KG, UNK
     Route: 065
  15. PHENOBARBITAL. [Suspect]
     Active Substance: PHENOBARBITAL
     Indication: PARTIAL SEIZURES
     Dosage: 3 MG/KG, UNK (LATER REDUCED TO 3 MG/KG)
     Route: 065
  16. QUINIDINE [Suspect]
     Active Substance: QUINIDINE
     Indication: ATRIAL FIBRILLATION
     Dosage: (INCREASED EVERY 2 TO 4 DAYS OF 4 TO 5 MG/KG (TARGET 60 MG/KG))
     Route: 065
  17. QUINIDINE [Suspect]
     Active Substance: QUINIDINE
     Dosage: REDUCED DOSE AFTER INCREASED QT-INTERVAL; WAS LATER INCREASED TO 70 MG/KG DAILY
     Route: 065
  18. LEVETIRACETAM. [Suspect]
     Active Substance: LEVETIRACETAM
     Indication: PARTIAL SEIZURES
     Dosage: 60 MG/KG, QD
     Route: 065
  19. CLONAZEPAM. [Concomitant]
     Active Substance: CLONAZEPAM
     Indication: PARTIAL SEIZURES
     Dosage: 0.2 MG/KG, UNK
     Route: 048
  20. QUINIDINE [Suspect]
     Active Substance: QUINIDINE
     Dosage: 45 MG/KG, UNK (CURRENTLY MAINTAINED ON 45 MG/KG IN 4 DIVIDED DOSES)
     Route: 065
  21. LEVETIRACETAM. [Suspect]
     Active Substance: LEVETIRACETAM
     Dosage: 100 MG/KG, QD
     Route: 065
  22. TOPIRAMATE. [Concomitant]
     Active Substance: TOPIRAMATE
     Indication: PARTIAL SEIZURES
     Dosage: 5 MG/KG, QD
     Route: 065

REACTIONS (8)
  - Atrioventricular block [Unknown]
  - Drug interaction [Recovered/Resolved]
  - Seizure [Recovering/Resolving]
  - Multiple-drug resistance [Unknown]
  - Drug ineffective [Unknown]
  - Electrocardiogram QT prolonged [Recovered/Resolved]
  - Status epilepticus [Unknown]
  - Drug level decreased [Recovered/Resolved]
